FAERS Safety Report 10783982 (Version 1)
Quarter: 2015Q1

REPORT INFORMATION
  Report Type: Spontaneous
  Country: ES (occurrence: ES)
  Receive Date: 20150211
  Receipt Date: 20150211
  Transmission Date: 20150721
  Serious: Yes (Life-Threatening, Hospitalization)
  Sender: FDA-Public Use
  Company Number: ES-ROCHE-1535219

PATIENT
  Age: 71 Year
  Sex: Male

DRUGS (3)
  1. ACTILYSE [Suspect]
     Active Substance: ALTEPLASE
     Indication: THROMBOTIC CEREBRAL INFARCTION
     Route: 042
     Dates: start: 20140527, end: 20140527
  2. ENOXAPARINA [Interacting]
     Active Substance: ENOXAPARIN
     Indication: PROPHYLAXIS
     Route: 058
     Dates: start: 20140527, end: 20140528
  3. HEPARIN SODIUM. [Interacting]
     Active Substance: HEPARIN SODIUM
     Indication: PROPHYLAXIS
     Route: 042
     Dates: start: 20140529, end: 20140529

REACTIONS (2)
  - Cerebral haemorrhage [Recovered/Resolved]
  - Drug interaction [Unknown]

NARRATIVE: CASE EVENT DATE: 20140529
